FAERS Safety Report 17339471 (Version 1)
Quarter: 2020Q1

REPORT INFORMATION
  Report Type: Spontaneous
  Country: US (occurrence: US)
  Receive Date: 20200128
  Receipt Date: 20200128
  Transmission Date: 20200409
  Serious: No
  Sender: FDA-Public Use
  Company Number: None

PATIENT
  Age: 24 Year
  Sex: Female
  Weight: 49.5 kg

DRUGS (1)
  1. LEVOFLOXACIN. [Suspect]
     Active Substance: LEVOFLOXACIN
     Indication: SINUSITIS
     Dosage: ?          QUANTITY:1 TABLET(S);?
     Route: 048
     Dates: start: 20200120, end: 20200121

REACTIONS (5)
  - Paraesthesia [None]
  - Palpitations [None]
  - Hypoaesthesia [None]
  - Pain in extremity [None]
  - Anxiety [None]

NARRATIVE: CASE EVENT DATE: 20200121
